FAERS Safety Report 12464839 (Version 1)
Quarter: 2016Q2

REPORT INFORMATION
  Report Type: Spontaneous
  Country: US (occurrence: US)
  Receive Date: 20160614
  Receipt Date: 20160614
  Transmission Date: 20160815
  Serious: No
  Sender: FDA-Public Use
  Company Number: US-DRREDDYS-DRL/USA/16/0078485

PATIENT
  Age: 52 Year
  Sex: Female
  Weight: 90.7 kg

DRUGS (1)
  1. FEXOFENADINE HCL 60 MG AND PSEUDOEPHEDRINE HCL ER 120 MG [Suspect]
     Active Substance: FEXOFENADINE HYDROCHLORIDE\PSEUDOEPHEDRINE HYDROCHLORIDE
     Indication: BRONCHITIS
     Dosage: 60MG/120MG; ONE TABLET EACH MORNING WITH A GLASS OF WATER
     Route: 048

REACTIONS (3)
  - Medication residue present [Unknown]
  - Product quality issue [Unknown]
  - Drug ineffective [Unknown]
